FAERS Safety Report 5412780-7 (Version None)
Quarter: 2007Q3

REPORT INFORMATION
  Report Type: 
  Country: None (occurrence: None)
  Receive Date: 20070713
  Receipt Date: 20070322
  Transmission Date: 20080115
  Serious: No
  Sender: FDA-Public Use
  Company Number: 2007SP001045

PATIENT
  Age: 83 Year
  Sex: Male
  Weight: 72.5755 kg

DRUGS (10)
  1. LUNESTA [Suspect]
     Indication: INSOMNIA
     Dosage: 3 MG;PRN;ORAL  5 MG;1X;ORAL
     Route: 048
     Dates: start: 20060901, end: 20070101
  2. LUNESTA [Suspect]
     Indication: INSOMNIA
     Dosage: 3 MG;PRN;ORAL  5 MG;1X;ORAL
     Route: 048
     Dates: start: 20070510, end: 20070510
  3. COREG [Concomitant]
  4. LISINOPRIL [Concomitant]
  5. CLONOPIN [Concomitant]
  6. SIMVASTATIN [Concomitant]
  7. WARFARIN SODIUM [Concomitant]
  8. BUSPIRONE [Concomitant]
  9. SEROQUEL [Concomitant]
  10. TEMAZEPAM [Concomitant]

REACTIONS (4)
  - DRUG INEFFECTIVE [None]
  - HANGOVER [None]
  - HYPOAESTHESIA [None]
  - MIDDLE INSOMNIA [None]
